FAERS Safety Report 9395934 (Version 2)
Quarter: 2013Q4

REPORT INFORMATION
  Report Type: Spontaneous
  Country: US (occurrence: US)
  Receive Date: 20130711
  Receipt Date: 20131118
  Transmission Date: 20140711
  Serious: Yes (Other)
  Sender: FDA-Public Use
  Company Number: US-GLAXOSMITHKLINE-A0948846A

PATIENT
  Age: 60 Year
  Sex: Female
  Weight: 68.1 kg

DRUGS (10)
  1. BENLYSTA [Suspect]
     Indication: SYSTEMIC LUPUS ERYTHEMATOSUS
     Route: 042
     Dates: start: 20110726
  2. PREDNISONE [Concomitant]
     Dosage: 9MG PER DAY
     Route: 048
  3. ASACOL [Concomitant]
     Route: 048
  4. LYRICA [Concomitant]
     Dosage: 75MG PER DAY
     Route: 048
  5. LODINE [Concomitant]
     Dosage: 400MG PER DAY
     Route: 048
  6. SAVELLA [Concomitant]
     Dosage: 50MG PER DAY
     Route: 048
  7. VITAMIN D [Concomitant]
     Dosage: 1000IU PER DAY
  8. IMURAN [Concomitant]
     Dosage: 75MG PER DAY
     Route: 048
  9. IMITREX [Concomitant]
  10. ESTRADIOL [Concomitant]

REACTIONS (5)
  - Systemic lupus erythematosus [Recovered/Resolved]
  - Colitis [Recovered/Resolved]
  - Feeling cold [Recovered/Resolved]
  - Alcohol intolerance [Not Recovered/Not Resolved]
  - Drug effect decreased [Not Recovered/Not Resolved]
